FAERS Safety Report 8469838-8 (Version None)
Quarter: 2012Q2

REPORT INFORMATION
  Report Type: 
  Country: None (occurrence: None)
  Receive Date: 20120626
  Receipt Date: 20120622
  Transmission Date: 20120825
  Serious: Yes (Death, Hospitalization)
  Sender: FDA-Public Use
  Company Number: US-AMGEN-USASP2011019796

PATIENT
  Sex: Male

DRUGS (5)
  1. DACOGEN [Concomitant]
     Route: 042
  2. NPLATE [Suspect]
     Indication: IDIOPATHIC THROMBOCYTOPENIC PURPURA
     Dosage: 450 MUG, QWK
     Route: 058
     Dates: start: 20110518, end: 20110608
  3. NPLATE [Suspect]
  4. VIDAZA [Concomitant]
     Route: 042
  5. NPLATE [Suspect]
     Indication: MYELODYSPLASTIC SYNDROME

REACTIONS (2)
  - DEATH [None]
  - HOSPITALISATION [None]
